FAERS Safety Report 7350890-8 (Version None)
Quarter: 2011Q1

REPORT INFORMATION
  Report Type: 
  Country: None (occurrence: None)
  Receive Date: 20110314
  Receipt Date: 20110310
  Transmission Date: 20110831
  Serious: No
  Sender: FDA-Public Use
  Company Number: US-PFIZER INC-2011053710

PATIENT
  Sex: Male
  Weight: 74.83 kg

DRUGS (1)
  1. ZOLOFT [Suspect]
     Indication: ANXIETY
     Dosage: 25 MG, DAILY
     Route: 048
     Dates: start: 20110308

REACTIONS (1)
  - DRY MOUTH [None]
